FAERS Safety Report 19653227 (Version 3)
Quarter: 2021Q3

REPORT INFORMATION
  Report Type: Report from Study
  Country: US (occurrence: US)
  Receive Date: 20210803
  Receipt Date: 20210921
  Transmission Date: 20211014
  Serious: Yes (Hospitalization, Other)
  Sender: FDA-Public Use
  Company Number: US-ASTRAZENECA-2021A121443

PATIENT
  Age: 924 Month
  Sex: Female

DRUGS (5)
  1. TAGRISSO [Suspect]
     Active Substance: OSIMERTINIB
     Indication: NON-SMALL CELL LUNG CANCER
     Route: 048
     Dates: start: 20210811
  2. STUDY DRUG [Concomitant]
     Active Substance: INVESTIGATIONAL PRODUCT
  3. NITAZOXANIDE [Concomitant]
     Active Substance: NITAZOXANIDE
  4. TAGRISSO [Suspect]
     Active Substance: OSIMERTINIB
     Indication: NON-SMALL CELL LUNG CANCER
     Route: 048
     Dates: start: 20200518, end: 20210707
  5. TAGRISSO [Suspect]
     Active Substance: OSIMERTINIB
     Indication: NON-SMALL CELL LUNG CANCER
     Dosage: UNKNOWN
     Route: 048

REACTIONS (24)
  - Fatigue [Not Recovered/Not Resolved]
  - Insomnia [Recovering/Resolving]
  - Night sweats [Unknown]
  - Abdominal pain [Recovering/Resolving]
  - Pruritus [Unknown]
  - Condition aggravated [Unknown]
  - Nightmare [Unknown]
  - Dehydration [Unknown]
  - Cataract [Unknown]
  - Neoplasm progression [Unknown]
  - Skin reaction [Unknown]
  - Joint injury [Unknown]
  - Eye contusion [Unknown]
  - Vomiting [Not Recovered/Not Resolved]
  - Constipation [Unknown]
  - Asthenia [Recovering/Resolving]
  - Fall [Unknown]
  - Gastrointestinal bacterial overgrowth [Not Recovered/Not Resolved]
  - Head injury [Unknown]
  - Rash [Recovering/Resolving]
  - Weight decreased [Unknown]
  - Nausea [Recovering/Resolving]
  - Arthropathy [Unknown]
  - Diarrhoea [Not Recovered/Not Resolved]

NARRATIVE: CASE EVENT DATE: 202103
